FAERS Safety Report 24129595 (Version 1)
Quarter: 2024Q3

REPORT INFORMATION
  Report Type: Report from Study
  Country: US (occurrence: US)
  Receive Date: 20240724
  Receipt Date: 20240724
  Transmission Date: 20241016
  Serious: Yes (Other)
  Sender: ABBVIE
  Company Number: US-ABBVIE-5810627

PATIENT
  Age: 54 Year
  Sex: Female
  Weight: 108.86 kg

DRUGS (2)
  1. RINVOQ [Suspect]
     Active Substance: UPADACITINIB
     Indication: Eczema
     Dosage: FORM STRENGTH 15 MILLIGRAM; DISCONTINUED IN 2024
     Route: 048
     Dates: start: 20240513, end: 20240621
  2. TYLENOL [Concomitant]
     Active Substance: ACETAMINOPHEN
     Indication: Pain
     Route: 065

REACTIONS (4)
  - Endodontic procedure [Unknown]
  - Fracture infection [Recovered/Resolved]
  - Toothache [Not Recovered/Not Resolved]
  - Mouth swelling [Not Recovered/Not Resolved]

NARRATIVE: CASE EVENT DATE: 20240601
